FAERS Safety Report 8217363-1 (Version None)
Quarter: 2012Q1

REPORT INFORMATION
  Report Type: 
  Country: None (occurrence: None)
  Receive Date: 20120319
  Receipt Date: 20120307
  Transmission Date: 20120608
  Serious: Yes (Hospitalization)
  Sender: FDA-Public Use
  Company Number: US-BAYER-2012-009729

PATIENT
  Age: 33 Year
  Sex: Female

DRUGS (5)
  1. ALLEGRA [Concomitant]
  2. YASMIN [Suspect]
     Dosage: UNK
     Dates: start: 20061101, end: 20080501
  3. NYQUIL [Concomitant]
  4. YAZ [Suspect]
     Dosage: UNK
     Dates: start: 20061101, end: 20080501
  5. DROSPIRENONE AND ETHINYL ESTRADIOL [Suspect]
     Dosage: UNK
     Dates: start: 20061101, end: 20080501

REACTIONS (1)
  - PULMONARY EMBOLISM [None]
